FAERS Safety Report 6546358-9 (Version None)
Quarter: 2010Q1

REPORT INFORMATION
  Report Type: 
  Country: None (occurrence: None)
  Receive Date: 20100114
  Receipt Date: 20091110
  Transmission Date: 20100710
  Serious: No
  Sender: FDA-Public Use
  Company Number: 2009BM000305

PATIENT
  Age: 37 Year
  Sex: Female
  Weight: 77.1115 kg

DRUGS (4)
  1. KUVAN [Suspect]
     Indication: PHENYLKETONURIA
     Dosage: 1800 MG;QD;PO ; 900 MG;QD;PO
     Route: 048
     Dates: start: 20080101, end: 20091107
  2. KUVAN [Suspect]
     Indication: PHENYLKETONURIA
     Dosage: 1800 MG;QD;PO ; 900 MG;QD;PO
     Route: 048
     Dates: start: 20091117
  3. MULTI-VITAMINS [Concomitant]
  4. ACIDOPHILUS [Concomitant]

REACTIONS (14)
  - ASTHENIA [None]
  - CHILLS [None]
  - DECREASED APPETITE [None]
  - DIARRHOEA [None]
  - DYSPNOEA [None]
  - EATING DISORDER [None]
  - FATIGUE [None]
  - HYPOAESTHESIA [None]
  - MUSCLE SPASMS [None]
  - NAUSEA [None]
  - PALPITATIONS [None]
  - PANIC ATTACK [None]
  - PYREXIA [None]
  - VIRAL INFECTION [None]
